FAERS Safety Report 7858307-1 (Version None)
Quarter: 2011Q4

REPORT INFORMATION
  Report Type: 
  Country: None (occurrence: None)
  Receive Date: 20111027
  Receipt Date: 20111013
  Transmission Date: 20120403
  Serious: Yes (Hospitalization)
  Sender: FDA-Public Use
  Company Number: US-BAYER-2011-012779

PATIENT
  Age: 32 Year
  Sex: Female
  Weight: 85.261 kg

DRUGS (1)
  1. YAZ [Suspect]
     Indication: CONTRACEPTION
     Dosage: UNK
     Dates: start: 20061201, end: 20080201

REACTIONS (7)
  - DEEP VEIN THROMBOSIS [None]
  - CHEST PAIN [None]
  - PULMONARY EMBOLISM [None]
  - DYSPNOEA [None]
  - PAIN [None]
  - FEAR [None]
  - BUNDLE BRANCH BLOCK BILATERAL [None]
